FAERS Safety Report 7964197-9 (Version None)
Quarter: 2011Q4

REPORT INFORMATION
  Report Type: 
  Country: None (occurrence: None)
  Receive Date: 20111121
  Receipt Date: 20110802
  Transmission Date: 20120403
  Serious: No
  Sender: FDA-Public Use
  Company Number: 1000022613

PATIENT
  Age: 58 Year
  Sex: Female

DRUGS (3)
  1. VIIBRYD [Suspect]
     Indication: DEPRESSION
     Dosage: 10 MG (10 MG, 1 IN 1 D),ORAL
     Route: 048
     Dates: start: 20110720, end: 20110726
  2. ADDERALL (OBETROL /01345401/) (OBETROL/01345401/) [Concomitant]
  3. NORCO (VICODIN) (VICODIN) [Concomitant]

REACTIONS (2)
  - ABDOMINAL DISCOMFORT [None]
  - FEELING ABNORMAL [None]
